FAERS Safety Report 8965508 (Version 1)
Quarter: 2012Q4

REPORT INFORMATION
  Report Type: Spontaneous
  Country: US (occurrence: None)
  Receive Date: 20121212
  Receipt Date: 20121212
  Transmission Date: 20130627
  Serious: Yes (Hospitalization)
  Sender: FDA-Public Use
  Company Number: None

PATIENT
  Age: 48 Year
  Sex: Female

DRUGS (3)
  1. PROLASTIN-C [Suspect]
     Indication: ALPHA-1 ANTI-TRYPSIN DEFICIENCY
     Dosage: 3350mg (+/- 10%) weekly IV
     Dates: start: 20121130
  2. PROLASTIN-C [Suspect]
     Indication: ALPHA-1 ANTI-TRYPSIN DEFICIENCY
  3. PROLASTIN-C [Suspect]
     Dates: start: 20121207

REACTIONS (5)
  - Urticaria [None]
  - Infusion related reaction [None]
  - Pruritus [None]
  - Cough [None]
  - Throat irritation [None]
